FAERS Safety Report 8095556-4 (Version None)
Quarter: 2012Q1

REPORT INFORMATION
  Report Type: 
  Country: None (occurrence: None)
  Receive Date: 20120131
  Receipt Date: 20120123
  Transmission Date: 20120608
  Serious: Yes (Hospitalization)
  Sender: FDA-Public Use
  Company Number: FR-PFIZER INC-2010053376

PATIENT
  Age: 82 Year
  Sex: Female

DRUGS (9)
  1. FLUCONAZOLE [Suspect]
     Dosage: UNK
     Route: 048
     Dates: start: 20091211, end: 20100311
  2. RIFADIN [Suspect]
     Dosage: UNK
     Route: 048
     Dates: start: 20091120, end: 20100312
  3. LEVOTHYROXINE SODIUM [Concomitant]
     Dosage: UNK
     Dates: start: 20091101
  4. OFLOXACIN [Suspect]
     Dosage: UNK
     Route: 048
     Dates: start: 20091120, end: 20100312
  5. VASTAREL [Concomitant]
     Dosage: UNK
     Dates: start: 20091101
  6. FENOFIBRATE [Concomitant]
     Dosage: UNK
     Dates: start: 20091101
  7. RAMIPRIL [Suspect]
     Dosage: UNK
     Route: 048
     Dates: start: 20091210, end: 20100317
  8. ASPEGIC 325 [Concomitant]
     Dosage: UNK
     Dates: start: 20091101
  9. NEXIUM [Suspect]
     Dosage: UNK
     Route: 048
     Dates: start: 20091120, end: 20100311

REACTIONS (4)
  - NEUTROPENIA [None]
  - ANAEMIA [None]
  - LEUKOPENIA [None]
  - INFLAMMATION [None]
